FAERS Safety Report 12798607 (Version 1)
Quarter: 2016Q3

REPORT INFORMATION
  Report Type: Spontaneous
  Country: US (occurrence: US)
  Receive Date: 20160930
  Receipt Date: 20160930
  Transmission Date: 20161109
  Serious: No
  Sender: FDA-Public Use
  Company Number: US-KOWA-15US001088

PATIENT
  Age: 66 Year
  Sex: Female

DRUGS (3)
  1. LIVALO [Suspect]
     Active Substance: PITAVASTATIN CALCIUM
     Dosage: 1 DF, QD
     Dates: start: 201507, end: 201507
  2. LIVALO [Suspect]
     Active Substance: PITAVASTATIN CALCIUM
     Dosage: 2 DF, QD
     Dates: start: 201507, end: 201507
  3. ACTOS [Concomitant]
     Active Substance: PIOGLITAZONE HYDROCHLORIDE
     Dosage: UNK

REACTIONS (8)
  - Fear [Recovered/Resolved]
  - Dyspnoea [Recovered/Resolved]
  - Headache [Recovered/Resolved]
  - Wrong technique in product usage process [Recovered/Resolved]
  - Pain in extremity [Recovered/Resolved]
  - Back pain [Recovered/Resolved]
  - Mobility decreased [Recovered/Resolved]
  - Discomfort [Recovered/Resolved]

NARRATIVE: CASE EVENT DATE: 201507
